FAERS Safety Report 12833622 (Version 1)
Quarter: 2016Q4

REPORT INFORMATION
  Report Type: Spontaneous
  Country: JP (occurrence: JP)
  Receive Date: 20161010
  Receipt Date: 20161010
  Transmission Date: 20170207
  Serious: Yes (Disabling)
  Sender: FDA-Public Use
  Company Number: JP-MALLINCKRODT-T201604854

PATIENT
  Age: 58 Year
  Sex: Female
  Weight: 43 kg

DRUGS (22)
  1. ACELIO [Concomitant]
     Active Substance: ACETAMINOPHEN
     Dosage: 2000 MG
     Route: 051
     Dates: start: 20151029, end: 20151101
  2. HOKUNALIN [Concomitant]
     Active Substance: TULOBUTEROL
     Dosage: 2 MG
     Route: 062
     Dates: end: 20160310
  3. MORPHINE HYDROCHLORIDE TRIHYDRATE [Concomitant]
     Indication: ANALGESIC THERAPY
     Dosage: 2.5 MG, PRN
     Route: 051
     Dates: start: 20151027
  4. LECICARBON [Concomitant]
     Active Substance: SODIUM BICARBONATE\SODIUM PHOSPHATE, MONOBASIC
     Dosage: 1 DF
     Route: 054
     Dates: start: 20151106, end: 20160229
  5. METHADONE [Suspect]
     Active Substance: METHADONE HYDROCHLORIDE
     Indication: PRODUCT USED FOR UNKNOWN INDICATION
     Dosage: 5 MG (15 MG DAILY DOSE)
     Route: 048
     Dates: start: 20151028, end: 20160112
  6. CALORYL [Concomitant]
     Dosage: 32.1 G
     Route: 048
     Dates: end: 20160229
  7. LANSOPRAZOLE. [Concomitant]
     Active Substance: LANSOPRAZOLE
     Dosage: 15 MG
     Route: 048
     Dates: end: 20160229
  8. MAGMITT [Concomitant]
     Active Substance: MAGNESIUM OXIDE
     Dosage: 990 MG
     Route: 048
     Dates: end: 20151126
  9. CALONAL [Concomitant]
     Active Substance: ACETAMINOPHEN
     Indication: ANALGESIC THERAPY
     Dosage: 3000 MG
     Route: 048
     Dates: start: 20151102, end: 20151217
  10. GLYCERIN. [Concomitant]
     Active Substance: GLYCERIN
     Dosage: 60 ML
     Route: 054
     Dates: start: 20151108, end: 20160229
  11. ACELIO [Concomitant]
     Active Substance: ACETAMINOPHEN
     Indication: ANALGESIC THERAPY
     Dosage: 1000 MG
     Route: 051
     Dates: start: 20151008, end: 20151008
  12. ACELIO [Concomitant]
     Active Substance: ACETAMINOPHEN
     Dosage: 2000 MG
     Route: 051
     Dates: start: 20151009, end: 20151012
  13. ACELIO [Concomitant]
     Active Substance: ACETAMINOPHEN
     Dosage: 3000 MG
     Route: 051
     Dates: start: 20151013, end: 20151028
  14. OPSO [Concomitant]
     Active Substance: MORPHINE HYDROCHLORIDE
     Indication: ANALGESIC THERAPY
     Dosage: 5 MG, PRN
     Route: 051
     Dates: start: 20151102
  15. LYRICA [Concomitant]
     Active Substance: PREGABALIN
     Dosage: 75 MG
     Route: 048
     Dates: start: 20151019, end: 20151103
  16. LYRICA [Concomitant]
     Active Substance: PREGABALIN
     Dosage: 150 MG
     Route: 048
     Dates: start: 20151104, end: 20160229
  17. CYMBALTA [Concomitant]
     Active Substance: DULOXETINE HYDROCHLORIDE
     Indication: ANALGESIC THERAPY
     Dosage: 20 MG
     Route: 048
     Dates: start: 20151023, end: 20151105
  18. METHADONE [Suspect]
     Active Substance: METHADONE HYDROCHLORIDE
     Dosage: 10 MG (20 MG DAILY DOSE)
     Route: 048
     Dates: start: 20160113, end: 20160119
  19. METHADONE [Suspect]
     Active Substance: METHADONE HYDROCHLORIDE
     Dosage: 10 MG (30 MG DAILY DOSE)
     Route: 048
     Dates: start: 20160120, end: 20160122
  20. METHADONE [Suspect]
     Active Substance: METHADONE HYDROCHLORIDE
     Dosage: 10 MG (20 MG DAILY DOSE)
     Route: 048
     Dates: start: 20160123, end: 20160229
  21. CALONAL [Concomitant]
     Active Substance: ACETAMINOPHEN
     Dosage: 4000 MG
     Route: 048
     Dates: start: 20151218, end: 20160229
  22. MAGMITT [Concomitant]
     Active Substance: MAGNESIUM OXIDE
     Dosage: 1500 MG
     Route: 048
     Dates: start: 20151127, end: 20160229

REACTIONS (2)
  - Spinal compression fracture [Recovered/Resolved]
  - Femur fracture [Recovering/Resolving]

NARRATIVE: CASE EVENT DATE: 20151108
